FAERS Safety Report 5141606-4 (Version None)
Quarter: 2006Q4

REPORT INFORMATION
  Report Type: 
  Country: None (occurrence: None)
  Receive Date: 20061026
  Receipt Date: 20061023
  Transmission Date: 20070319
  Serious: Yes (Hospitalization)
  Sender: FDA-Public Use
  Company Number: 008852

PATIENT
  Age: 71 Year
  Sex: Female

DRUGS (14)
  1. LEFLUNOMIDE (LEFLUNOMIDE) TABLET, 20MG [Suspect]
     Indication: RHEUMATOID ARTHRITIS
     Dosage: 20 MG, QD, ORAL
     Route: 048
     Dates: start: 20060301
  2. ARAVA [Concomitant]
  3. LASIX [Concomitant]
  4. POTASSIUM CHLORIDE [Concomitant]
  5. PREDNISONE TAB [Concomitant]
  6. PRILOSEC [Concomitant]
  7. CARDIZEM [Concomitant]
  8. SYNTRHOID (LEVOTHYROXINE SODIUM) [Concomitant]
  9. XOPENEX [Concomitant]
  10. SPIRIVA [Concomitant]
  11. ALBUTEROL [Concomitant]
  12. PLAVIX [Concomitant]
  13. THEOPHYLLINE [Concomitant]
  14. RYTHMOL (PROPAFFENONE) [Concomitant]

REACTIONS (9)
  - ABDOMINAL PAIN UPPER [None]
  - ARRHYTHMIA [None]
  - ARTHRALGIA [None]
  - ARTHRITIS [None]
  - CONDITION AGGRAVATED [None]
  - DIARRHOEA [None]
  - DRUG INEFFECTIVE [None]
  - ERYTHEMA [None]
  - JOINT SWELLING [None]
